FAERS Safety Report 9283010 (Version 1)
Quarter: 2013Q2

REPORT INFORMATION
  Report Type: Spontaneous
  Country: US (occurrence: US)
  Receive Date: 20130510
  Receipt Date: 20130510
  Transmission Date: 20140414
  Serious: No
  Sender: FDA-Public Use
  Company Number: US-GLAXOSMITHKLINE-A0973244A

PATIENT
  Age: 43 Year
  Sex: Female

DRUGS (6)
  1. TYKERB [Suspect]
     Indication: BREAST CANCER
     Dosage: 5TAB PER DAY
     Route: 048
     Dates: start: 20120403
  2. XELODA [Suspect]
     Dosage: 1800MG TWICE PER DAY
     Route: 048
     Dates: start: 20120403
  3. KEPPRA [Concomitant]
  4. LORTAB [Concomitant]
  5. TYLENOL [Concomitant]
  6. RADIOTHERAPY [Concomitant]
     Dates: end: 20120409

REACTIONS (5)
  - Fatigue [Unknown]
  - Diarrhoea [Unknown]
  - Headache [Recovering/Resolving]
  - Dizziness [Not Recovered/Not Resolved]
  - Dyspepsia [Recovering/Resolving]
